FAERS Safety Report 7083369-1 (Version None)
Quarter: 2010Q4

REPORT INFORMATION
  Report Type: 
  Country: None (occurrence: None)
  Receive Date: 20101104
  Receipt Date: 20101026
  Transmission Date: 20110411
  Serious: Yes (Hospitalization, Other)
  Sender: FDA-Public Use
  Company Number: CO-WYE-H18390210

PATIENT
  Sex: Female

DRUGS (14)
  1. ENBREL [Suspect]
     Indication: RHEUMATOID ARTHRITIS
     Dosage: 50 MG WEEKLY FROM 2009 TO 17-OCT-2010
     Route: 058
  2. METHOTREXATE SODIUM [Suspect]
     Indication: RHEUMATOID ARTHRITIS
     Dosage: 1995 TO 1998, DOSE AND FREQUENCY NOT SPECIFIED
     Route: 051
  3. METHOTREXATE [Suspect]
     Indication: RHEUMATOID ARTHRITIS
     Dosage: 1998 TO 2001, UNSPECIFIED DOSE BID TWICE WEEKLY, TABLET
     Route: 048
  4. METHOTREXATE [Suspect]
     Dosage: 2001 TO 2009, AS NEEDED
     Route: 048
  5. ARALEN [Suspect]
     Dosage: UNKNOWN DOSE AND FREQUENCY 2001-2009
  6. OMEPRAZOLE [Concomitant]
  7. CALCIUM [Concomitant]
     Dosage: UNSPECIFIED
     Dates: start: 20020101
  8. CALCITRIOL [Concomitant]
     Dosage: UNSPECIFIED
     Dates: start: 20020101
  9. ARAVA [Concomitant]
     Indication: RHEUMATOID ARTHRITIS
     Dosage: 20 MG EVERY
     Dates: start: 20070101
  10. ACETAMINOPHEN [Concomitant]
     Indication: ARTHRALGIA
     Dosage: 500 MG AS NEEDED
  11. LEVOTHYROXINE [Concomitant]
     Indication: HYPOTHYROIDISM
     Dosage: 50 UG EVERY
     Route: 048
     Dates: start: 19840101
  12. IBUPROFEN [Suspect]
     Indication: ARTHRALGIA
     Dosage: 100 OR 500 MG AS NEEDED
     Route: 048
     Dates: start: 19930101
  13. GINKGO BILOBA [Concomitant]
     Indication: PAIN IN EXTREMITY
     Dosage: UNSPECIFIED
     Dates: start: 19970101
  14. GINKGO BILOBA [Concomitant]
     Indication: VARICOSE VEIN

REACTIONS (9)
  - ABDOMINAL PAIN [None]
  - ALOPECIA [None]
  - BLOOD GLUCOSE INCREASED [None]
  - BLOOD PRESSURE INCREASED [None]
  - KIDNEY ENLARGEMENT [None]
  - LIMB OPERATION [None]
  - SINUSITIS [None]
  - TRANSAMINASES INCREASED [None]
  - TUBERCULOSIS [None]
